FAERS Safety Report 9960803 (Version 1)
Quarter: 2014Q1

REPORT INFORMATION
  Report Type: Spontaneous
  Country: US (occurrence: None)
  Receive Date: 20140127
  Receipt Date: 20140127
  Transmission Date: 20141002
  Serious: Yes (Other)
  Sender: FDA-Public Use
  Company Number: 1252498

PATIENT
  Age: 68 Year
  Sex: Male

DRUGS (2)
  1. ALTEPLASE [Suspect]
     Indication: ISCHAEMIC STROKE
     Dosage: INTRAVENOUS (NOT OTHERWISE SPECIFIED) THERAPY - STOPPED
     Route: 042
  2. LISINOPRIL (LISINOPRIL) [Concomitant]

REACTIONS (1)
  - Angioedema [None]
